FAERS Safety Report 24977336 (Version 2)
Quarter: 2025Q1

REPORT INFORMATION
  Report Type: Spontaneous
  Country: FR (occurrence: FR)
  Receive Date: 20250217
  Receipt Date: 20250327
  Transmission Date: 20250408
  Serious: Yes (Other)
  Sender: ROCHE
  Company Number: FR-002147023-NVSC2025FR021434

PATIENT
  Age: 41 Year
  Sex: Female

DRUGS (2)
  1. XOLAIR [Suspect]
     Active Substance: OMALIZUMAB
     Indication: Product used for unknown indication
     Dosage: 300 MG, Q4W
     Route: 065
     Dates: start: 202411
  2. DESOGESTREL [Interacting]
     Active Substance: DESOGESTREL
     Indication: Endometriosis
     Route: 065

REACTIONS (7)
  - Device issue [Unknown]
  - Angioedema [Unknown]
  - Incorrect dose administered by device [Unknown]
  - Haematoma [Unknown]
  - Face oedema [Unknown]
  - Drug interaction [Unknown]
  - Urticaria [Unknown]

NARRATIVE: CASE EVENT DATE: 20241101
